FAERS Safety Report 6766710-6 (Version None)
Quarter: 2010Q2

REPORT INFORMATION
  Report Type: 
  Country: None (occurrence: None)
  Receive Date: 20100611
  Receipt Date: 20100601
  Transmission Date: 20101027
  Serious: Yes (Other)
  Sender: FDA-Public Use
  Company Number: US-PURDUE-USA-2010-0044314

PATIENT
  Sex: Female

DRUGS (17)
  1. DILAUDID [Suspect]
     Indication: PROCEDURAL PAIN
     Dosage: UNK
     Route: 042
     Dates: start: 20100507, end: 20100501
  2. DILAUDID [Suspect]
     Indication: PROCEDURAL PAIN
     Dosage: 12 MG, PRN
     Route: 048
     Dates: start: 20100501, end: 20100526
  3. DILAUDID [Suspect]
     Dosage: 4 MG, NOCTE
     Dates: end: 20100526
  4. SYNTHROID [Concomitant]
     Indication: DRUG USE FOR UNKNOWN INDICATION
     Dosage: 112 MCG, DAILY
  5. CEPHALEXIN [Concomitant]
     Indication: ULCER
     Dosage: 500 MG, QID
  6. SOTALOL [Concomitant]
     Indication: CARDIAC DISORDER
     Dosage: 80 MG, DAILY
  7. TORSEMIDE [Concomitant]
     Indication: FLUID RETENTION
     Dosage: 30 MG, DAILY
  8. POTASSIUM [Concomitant]
     Indication: MINERAL SUPPLEMENTATION
     Dosage: 2 TABLET, BID
  9. ALDACTONE [Concomitant]
     Indication: FLUID RETENTION
     Dosage: 25 MG, DAILY
  10. METFORMIN [Concomitant]
     Indication: DIABETES MELLITUS
     Dosage: 500 MG, BID
  11. FEOSOL [Concomitant]
     Indication: MINERAL SUPPLEMENTATION
     Dosage: 1 TABLET, DAILY
  12. CARAFATE [Concomitant]
     Indication: ULCER
     Dosage: 10 ML, UNK
  13. JANUVIA [Concomitant]
     Indication: DIABETES MELLITUS
     Dosage: 100 MG, DAILY
  14. PROTONIX [Concomitant]
     Indication: GASTROOESOPHAGEAL REFLUX DISEASE
     Dosage: 40 MG, DAILY
  15. COUMADIN [Concomitant]
     Indication: ATRIAL FIBRILLATION
     Dosage: 2 MG, DAILY
  16. VYTORIN [Concomitant]
     Indication: BLOOD CHOLESTEROL INCREASED
     Dosage: 10 MG, DAILY
  17. DARVOCET [Concomitant]
     Indication: PAIN
     Dosage: 100 MG, DAILY
     Dates: start: 20100526

REACTIONS (6)
  - BACK PAIN [None]
  - DIPLOPIA [None]
  - GASTROINTESTINAL ULCER HAEMORRHAGE [None]
  - TRANSIENT ISCHAEMIC ATTACK [None]
  - VISION BLURRED [None]
  - VITREOUS FLOATERS [None]
